FAERS Safety Report 8935404 (Version 1)
Quarter: 2012Q4

REPORT INFORMATION
  Report Type: Spontaneous
  Country: US (occurrence: None)
  Receive Date: 20121130
  Receipt Date: 20121130
  Transmission Date: 20130627
  Serious: Yes (Hospitalization)
  Sender: FDA-Public Use
  Company Number: None

PATIENT
  Age: 19 Year
  Sex: Female
  Weight: 48.08 kg

DRUGS (1)
  1. TRIAMCINOLONE [Suspect]

REACTIONS (3)
  - Headache [None]
  - Dizziness [None]
  - Fatigue [None]
